FAERS Safety Report 11186175 (Version 2)
Quarter: 2015Q3

REPORT INFORMATION
  Report Type: Spontaneous
  Country: US (occurrence: US)
  Receive Date: 20150612
  Receipt Date: 20150819
  Transmission Date: 20151125
  Serious: No
  Sender: FDA-Public Use
  Company Number: US-GILEAD-2015-0158224

PATIENT
  Sex: Male

DRUGS (2)
  1. LETAIRIS [Suspect]
     Active Substance: AMBRISENTAN
     Indication: PRODUCT USED FOR UNKNOWN INDICATION
     Route: 065
  2. OXYGEN. [Concomitant]
     Active Substance: OXYGEN

REACTIONS (7)
  - Headache [Unknown]
  - Poor peripheral circulation [Unknown]
  - Pain in extremity [Unknown]
  - Muscle twitching [Unknown]
  - Muscle spasms [Unknown]
  - Oxygen saturation decreased [Unknown]
  - Hypersensitivity [Unknown]
